FAERS Safety Report 16663984 (Version 3)
Quarter: 2019Q4

REPORT INFORMATION
  Report Type: Spontaneous
  Country: US (occurrence: US)
  Receive Date: 20190802
  Receipt Date: 20191227
  Transmission Date: 20200122
  Serious: Yes (Other)
  Sender: FDA-Public Use
  Company Number: US-ASTRAZENECA-2019SF08325

PATIENT
  Age: 25741 Day
  Sex: Female
  Weight: 95.3 kg

DRUGS (67)
  1. CETIRIZINE [Concomitant]
     Active Substance: CETIRIZINE HYDROCHLORIDE
     Dates: start: 20161128
  2. ZOCOR [Concomitant]
     Active Substance: SIMVASTATIN
     Indication: BLOOD CHOLESTEROL INCREASED
     Dates: start: 2012
  3. WARFARIN [Concomitant]
     Active Substance: WARFARIN
     Indication: ANTICOAGULANT THERAPY
     Dates: start: 2012, end: 2016
  4. ALLEGRA [Concomitant]
     Active Substance: FEXOFENADINE HYDROCHLORIDE
     Dosage: TAKE 1 TABLET BY ORAL ROUTE EVERY DAY
  5. DARVOCET [Concomitant]
     Active Substance: ACETAMINOPHEN\PROPOXYPHENE HYDROCHLORIDE
  6. LOSARTAN. [Concomitant]
     Active Substance: LOSARTAN
  7. ACTOS [Concomitant]
     Active Substance: PIOGLITAZONE HYDROCHLORIDE
     Dates: start: 20161128
  8. DULOXETINE. [Concomitant]
     Active Substance: DULOXETINE
     Dates: start: 20161128
  9. PREMARIN [Concomitant]
     Active Substance: ESTROGENS, CONJUGATED
     Dates: start: 20161128
  10. NEURONTIN [Concomitant]
     Active Substance: GABAPENTIN
     Dosage: 300 MG
     Dates: start: 20080522
  11. INVOKANA [Concomitant]
     Active Substance: CANAGLIFLOZIN
     Dosage: 100 MG DAILY
  12. NEXIUM [Suspect]
     Active Substance: ESOMEPRAZOLE MAGNESIUM
     Indication: GASTROOESOPHAGEAL REFLUX DISEASE
     Dosage: GENERIC, TAKE 1 CAPSULE BY ORAL ROUTE EVERY DAY
     Route: 048
     Dates: start: 20170130
  13. NEXIUM [Suspect]
     Active Substance: ESOMEPRAZOLE MAGNESIUM
     Indication: GASTROOESOPHAGEAL REFLUX DISEASE
     Dosage: GENERIC40.0MG UNKNOWN
     Route: 065
     Dates: start: 2017, end: 2018
  14. PRILOSEC [Suspect]
     Active Substance: OMEPRAZOLE MAGNESIUM
     Indication: GASTROOESOPHAGEAL REFLUX DISEASE
     Route: 048
     Dates: start: 1990, end: 2019
  15. DEXILANT [Suspect]
     Active Substance: DEXLANSOPRAZOLE
     Indication: GASTROOESOPHAGEAL REFLUX DISEASE
     Route: 065
     Dates: start: 1990, end: 2019
  16. DEXILANT [Suspect]
     Active Substance: DEXLANSOPRAZOLE
     Indication: GASTROOESOPHAGEAL REFLUX DISEASE
     Route: 065
     Dates: start: 2018
  17. PREVACID [Suspect]
     Active Substance: LANSOPRAZOLE
     Indication: GASTROOESOPHAGEAL REFLUX DISEASE
     Dosage: 30.0MG UNKNOWN
     Route: 065
  18. CHOLECALCIFEROL [Concomitant]
     Active Substance: CHOLECALCIFEROL
     Dates: start: 20161128
  19. VITAMIN B [Concomitant]
     Active Substance: VITAMIN B
     Dates: start: 20120622
  20. PEPCID [Concomitant]
     Active Substance: FAMOTIDINE
     Dates: start: 2005
  21. PROTONIX [Suspect]
     Active Substance: PANTOPRAZOLE SODIUM
     Indication: GASTROOESOPHAGEAL REFLUX DISEASE
     Route: 065
     Dates: start: 2005
  22. ALLOPURINOL. [Concomitant]
     Active Substance: ALLOPURINOL
     Dates: start: 20161128
  23. CARAFATE [Concomitant]
     Active Substance: SUCRALFATE
     Dates: start: 20161128
  24. MAGNESIUM OXIDE. [Concomitant]
     Active Substance: MAGNESIUM OXIDE
     Dates: start: 20161128
  25. NEURONTIN [Concomitant]
     Active Substance: GABAPENTIN
     Dates: start: 2013
  26. AVANDIA [Concomitant]
     Active Substance: ROSIGLITAZONE MALEATE
     Dosage: 8 MG TAB
  27. VITAMIN D3 [Concomitant]
     Active Substance: CHOLECALCIFEROL
     Dosage: 1,000 UNIT CHEWABLE TAB
     Dates: start: 20110926
  28. NORCO [Concomitant]
     Active Substance: ACETAMINOPHEN\HYDROCODONE BITARTRATE
  29. BENICAR [Concomitant]
     Active Substance: OLMESARTAN MEDOXOMIL
     Indication: HYPERTENSION
     Dates: start: 2013
  30. RANITIDINE. [Concomitant]
     Active Substance: RANITIDINE
     Dates: start: 2013
  31. PROTONIX [Suspect]
     Active Substance: PANTOPRAZOLE SODIUM
     Indication: GASTROOESOPHAGEAL REFLUX DISEASE
     Route: 065
     Dates: start: 2014, end: 2015
  32. LEVOTHYROXINE. [Concomitant]
     Active Substance: LEVOTHYROXINE
  33. PROAIR HFA [Concomitant]
     Active Substance: ALBUTEROL SULFATE
     Dates: start: 20170523
  34. ZANTAC [Concomitant]
     Active Substance: RANITIDINE HYDROCHLORIDE
  35. BENADRYL [Concomitant]
     Active Substance: DIPHENHYDRAMINE HYDROCHLORIDE
  36. SUCRALFATE. [Concomitant]
     Active Substance: SUCRALFATE
     Indication: ANTACID THERAPY
     Dates: start: 2012
  37. TYLENOL [Concomitant]
     Active Substance: ACETAMINOPHEN
     Indication: HEADACHE
  38. ASPIRIN. [Concomitant]
     Active Substance: ASPIRIN
  39. NEXIUM [Suspect]
     Active Substance: ESOMEPRAZOLE MAGNESIUM
     Indication: GASTROOESOPHAGEAL REFLUX DISEASE
     Route: 048
     Dates: start: 20120917
  40. PRILOSEC OTC [Suspect]
     Active Substance: OMEPRAZOLE MAGNESIUM
     Indication: GASTROOESOPHAGEAL REFLUX DISEASE
     Route: 048
     Dates: start: 1990, end: 2019
  41. PRILOSEC OTC [Suspect]
     Active Substance: OMEPRAZOLE MAGNESIUM
     Indication: GASTROOESOPHAGEAL REFLUX DISEASE
     Dosage: 20.0MG UNKNOWN
     Route: 048
     Dates: start: 2005
  42. PROTONIX [Suspect]
     Active Substance: PANTOPRAZOLE SODIUM
     Indication: GASTROOESOPHAGEAL REFLUX DISEASE
     Route: 065
     Dates: start: 1990, end: 2019
  43. AMLODIPINE [Concomitant]
     Active Substance: AMLODIPINE BESYLATE
     Dates: start: 20161128
  44. DYAZIDE [Concomitant]
     Active Substance: HYDROCHLOROTHIAZIDE\TRIAMTERENE
     Dosage: 37.5-25MG
     Dates: start: 20080522
  45. VITAMINS [Concomitant]
     Active Substance: VITAMINS
  46. METFORMIN [Concomitant]
     Active Substance: METFORMIN HYDROCHLORIDE
     Dates: start: 20161128
  47. TRADJENTA [Concomitant]
     Active Substance: LINAGLIPTIN
     Dates: start: 20161128
  48. TRAMADOL. [Concomitant]
     Active Substance: TRAMADOL
     Indication: PAIN
     Dates: start: 20161128
  49. TRAMADOL. [Concomitant]
     Active Substance: TRAMADOL
     Indication: PAIN
     Dates: start: 2014
  50. HYZAAR [Concomitant]
     Active Substance: HYDROCHLOROTHIAZIDE\LOSARTAN POTASSIUM
     Dates: start: 20170523
  51. COZAAR [Concomitant]
     Active Substance: LOSARTAN POTASSIUM
     Dosage: TAKE 1 TABLET BY ORAL ROUTE EVERY DAY
     Dates: start: 20140603
  52. PIOGLITAZONE. [Concomitant]
     Active Substance: PIOGLITAZONE
  53. FLEXERIL [Concomitant]
     Active Substance: CYCLOBENZAPRINE HYDROCHLORIDE
  54. NEXIUM [Suspect]
     Active Substance: ESOMEPRAZOLE MAGNESIUM
     Indication: GASTROOESOPHAGEAL REFLUX DISEASE
     Route: 048
     Dates: start: 1990, end: 2017
  55. NEXIUM [Suspect]
     Active Substance: ESOMEPRAZOLE MAGNESIUM
     Indication: GASTROOESOPHAGEAL REFLUX DISEASE
     Dosage: 40.0MG UNKNOWN
     Route: 048
     Dates: start: 2008, end: 2013
  56. PRILOSEC [Suspect]
     Active Substance: OMEPRAZOLE MAGNESIUM
     Indication: GASTROOESOPHAGEAL REFLUX DISEASE
     Dosage: 20.0MG UNKNOWN
     Route: 048
     Dates: start: 1997, end: 2005
  57. PREVACID [Suspect]
     Active Substance: LANSOPRAZOLE
     Indication: GASTROOESOPHAGEAL REFLUX DISEASE
     Route: 065
     Dates: start: 1990, end: 2019
  58. PROTONIX [Suspect]
     Active Substance: PANTOPRAZOLE SODIUM
     Indication: GASTROOESOPHAGEAL REFLUX DISEASE
     Route: 065
     Dates: start: 2012
  59. PROTONIX [Suspect]
     Active Substance: PANTOPRAZOLE SODIUM
     Indication: GASTROOESOPHAGEAL REFLUX DISEASE
     Dosage: GENERIC40.0MG UNKNOWN
     Route: 065
     Dates: start: 2016, end: 2017
  60. ATENOLOL. [Concomitant]
     Active Substance: ATENOLOL
     Dates: start: 20161128
  61. FERROUS SULFATE. [Concomitant]
     Active Substance: FERROUS SULFATE
     Dates: start: 20161128
  62. SYNTHROID [Concomitant]
     Active Substance: LEVOTHYROXINE SODIUM
     Dates: start: 20161128
  63. TIZANIDINE. [Concomitant]
     Active Substance: TIZANIDINE
     Dates: start: 20161128
  64. LIDODERM [Concomitant]
     Active Substance: LIDOCAINE
     Dosage: APPLY 1 PATCH BY TRANSDERMAL ROUTE EVERY DAY
     Dates: start: 20130304
  65. AZITHROMYCIN ANHYDROUS. [Concomitant]
     Active Substance: AZITHROMYCIN ANHYDROUS
     Indication: INFECTION
     Dates: start: 2012, end: 2013
  66. TYLENOL [Concomitant]
     Active Substance: ACETAMINOPHEN
     Indication: PAIN
  67. PEPCID [Concomitant]
     Active Substance: FAMOTIDINE
     Dates: start: 2018, end: 2019

REACTIONS (4)
  - Chronic kidney disease [Not Recovered/Not Resolved]
  - Acute kidney injury [Not Recovered/Not Resolved]
  - Nephrogenic anaemia [Unknown]
  - Renal failure [Unknown]

NARRATIVE: CASE EVENT DATE: 20170321
